FAERS Safety Report 10706664 (Version 1)
Quarter: 2015Q1

REPORT INFORMATION
  Report Type: Spontaneous
  Country: US (occurrence: None)
  Receive Date: 20150109
  Receipt Date: 20150109
  Transmission Date: 20150721
  Serious: Yes (Hospitalization, Other)
  Sender: FDA-Public Use
  Company Number: 1526394

PATIENT
  Age: 61 Year
  Sex: Female

DRUGS (2)
  1. VANCOMYCIN (NON-SPECIFIC) [Suspect]
     Active Substance: VANCOMYCIN
     Indication: ARTHRITIS INFECTIVE
  2. VANCOMYCIN/GENTAMICIN IMPREGNATED POLYMETHACRYLATE ARTICULATING SPACERS [Concomitant]

REACTIONS (1)
  - Haemolytic anaemia [None]
